FAERS Safety Report 5853841-8 (Version None)
Quarter: 2008Q3

REPORT INFORMATION
  Report Type: 
  Country: None (occurrence: None)
  Receive Date: 20080822
  Receipt Date: 20080819
  Transmission Date: 20090109
  Serious: Yes (Death, Hospitalization)
  Sender: FDA-Public Use
  Company Number: MX-BRISTOL-MYERS SQUIBB COMPANY-14221865

PATIENT
  Age: 74 Year
  Sex: Female

DRUGS (3)
  1. ABATACEPT [Suspect]
     Indication: RHEUMATOID ARTHRITIS
     Route: 042
     Dates: start: 20060725, end: 20080522
  2. METHOTREXATE SODIUM [Concomitant]
     Dates: start: 20060725, end: 20080602
  3. PREDNISONE TAB [Concomitant]
     Dates: start: 20060725, end: 20080624

REACTIONS (2)
  - PNEUMONIA [None]
  - SEPTIC SHOCK [None]
